FAERS Safety Report 11127208 (Version 1)
Quarter: 2015Q2

REPORT INFORMATION
  Report Type: Spontaneous
  Country: TW (occurrence: TW)
  Receive Date: 20150521
  Receipt Date: 20150521
  Transmission Date: 20150821
  Serious: Yes (Hospitalization)
  Sender: FDA-Public Use
  Company Number: TW-AMGEN-TWNSP2015049256

PATIENT
  Age: 49 Year
  Sex: Female

DRUGS (1)
  1. ENBREL [Suspect]
     Active Substance: ETANERCEPT
     Indication: ANKYLOSING SPONDYLITIS
     Dosage: 25 MG, EVERY 5 DAYS
     Route: 058
     Dates: start: 20100519

REACTIONS (2)
  - Lens dislocation [Unknown]
  - Vision blurred [Unknown]

NARRATIVE: CASE EVENT DATE: 201504
